FAERS Safety Report 9850489 (Version 2)
Quarter: 2014Q1

REPORT INFORMATION
  Report Type: Report from Study
  Country: JP (occurrence: JP)
  Receive Date: 20140128
  Receipt Date: 20140213
  Transmission Date: 20141002
  Serious: Yes (Other)
  Sender: FDA-Public Use
  Company Number: JP-PFIZER INC-2014018734

PATIENT
  Age: 8 Decade
  Sex: Male

DRUGS (5)
  1. PREDNISOLONE [Suspect]
     Indication: LYMPHOMA
     Dosage: UNK
  2. RITUXIMAB [Suspect]
     Indication: LYMPHOMA
  3. DOXORUBICIN [Concomitant]
     Indication: LYMPHOMA
  4. CYCLOPHOSPHAMIDE [Concomitant]
     Indication: LYMPHOMA
  5. VINCRISTINE [Concomitant]
     Indication: LYMPHOMA

REACTIONS (1)
  - Hepatitis B [Unknown]
